FAERS Safety Report 4823874-9 (Version None)
Quarter: 2005Q4

REPORT INFORMATION
  Report Type: 
  Country: None (occurrence: None)
  Receive Date: 20051107
  Receipt Date: 20051025
  Transmission Date: 20060501
  Serious: Yes (Other)
  Sender: FDA-Public Use
  Company Number: 2005147701

PATIENT
  Age: 27 Month
  Sex: Female
  Weight: 13.6079 kg

DRUGS (2)
  1. ZYRTEC [Suspect]
     Indication: HYPERSENSITIVITY
     Dosage: 5 MG (5 MG, 1 IN 1 D)
     Dates: start: 20050901, end: 20051023
  2. ZYRTEC [Suspect]
     Indication: NASAL CONGESTION
     Dosage: 5 MG (5 MG, 1 IN 1 D)
     Dates: start: 20050901, end: 20051023

REACTIONS (12)
  - ABDOMINAL PAIN UPPER [None]
  - CRYING [None]
  - DRUG HYPERSENSITIVITY [None]
  - DYSPHONIA [None]
  - EAR INFECTION [None]
  - FOOD ALLERGY [None]
  - HYPERSOMNIA [None]
  - OVERDOSE [None]
  - PERSONALITY CHANGE [None]
  - SCREAMING [None]
  - URTICARIA GENERALISED [None]
  - WHEEZING [None]
